FAERS Safety Report 7811249-X (Version None)
Quarter: 2011Q4

REPORT INFORMATION
  Report Type: 
  Country: None (occurrence: None)
  Receive Date: 20111013
  Receipt Date: 20110930
  Transmission Date: 20120403
  Serious: Yes (Other)
  Sender: FDA-Public Use
  Company Number: ES-CELGENEUS-144-21880-11080911

PATIENT
  Sex: Male
  Weight: 85 kg

DRUGS (4)
  1. REVLIMID [Suspect]
     Indication: MULTIPLE MYELOMA
     Dosage: 25 MILLIGRAM
     Route: 048
     Dates: start: 20110728, end: 20110806
  2. DEXAMETHASONE [Suspect]
     Indication: MULTIPLE MYELOMA
     Route: 048
     Dates: start: 20110728, end: 20110804
  3. DEXAMETHASONE [Suspect]
     Route: 048
     Dates: start: 20110818, end: 20110825
  4. REVLIMID [Suspect]
     Dosage: 15 MILLIGRAM
     Route: 048
     Dates: start: 20110818, end: 20110825

REACTIONS (3)
  - PYREXIA [None]
  - COAGULATION TEST ABNORMAL [None]
  - LIVER FUNCTION TEST ABNORMAL [None]
